FAERS Safety Report 13115520 (Version 3)
Quarter: 2017Q2

REPORT INFORMATION
  Report Type: Report from Study
  Country: None (occurrence: HU)
  Receive Date: 20170113
  Receipt Date: 20170413
  Transmission Date: 20170830
  Serious: Yes (Death, Life-Threatening)
  Sender: FDA-Public Use
  Company Number: HU-ABBVIE-17P-076-1835086-00

PATIENT
  Age: 64 Year
  Sex: Male
  Weight: 64 kg

DRUGS (2)
  1. DUODOPA [Suspect]
     Active Substance: CARBIDOPA\LEVODOPA
     Dosage: 16 HR THERAPY
     Route: 050
     Dates: start: 20161026
  2. DUODOPA [Suspect]
     Active Substance: CARBIDOPA\LEVODOPA
     Indication: PARKINSON^S DISEASE
     Dosage: MD: 12 ML; CD: 1.8 ML; ED 1 ML
     Route: 050
     Dates: start: 20160720, end: 20160722

REACTIONS (3)
  - Fall [Fatal]
  - Sudden death [Fatal]
  - Head injury [Fatal]

NARRATIVE: CASE EVENT DATE: 20170103
